FAERS Safety Report 14895396 (Version 1)
Quarter: 2018Q2

REPORT INFORMATION
  Report Type: Spontaneous
  Country: FR (occurrence: FR)
  Receive Date: 20180515
  Receipt Date: 20180515
  Transmission Date: 20180711
  Serious: Yes (Other)
  Sender: FDA-Public Use
  Company Number: FR-MERCK KGAA-2047745

PATIENT
  Age: 38 Year
  Sex: Female

DRUGS (1)
  1. NOVOTHYROX [Suspect]
     Active Substance: LEVOTHYROXINE SODIUM
     Indication: PRODUCT USED FOR UNKNOWN INDICATION
     Dates: start: 201707

REACTIONS (24)
  - Emotional distress [None]
  - Fatigue [None]
  - Hypothyroidism [None]
  - Menorrhagia [None]
  - Hyperhidrosis [None]
  - Headache [None]
  - Weight decreased [None]
  - Palpitations [None]
  - Hyperthyroidism [None]
  - Asthenia [None]
  - Alopecia [None]
  - Maternal exposure during pregnancy [None]
  - Salmonellosis [None]
  - Mood swings [None]
  - Dyspnoea [None]
  - Mean cell haemoglobin decreased [None]
  - Social avoidant behaviour [None]
  - Anxiety [None]
  - Insomnia [None]
  - Hypokinesia [None]
  - Balance disorder [None]
  - Neck pain [None]
  - Temperature intolerance [None]
  - Nervousness [None]

NARRATIVE: CASE EVENT DATE: 201707
